FAERS Safety Report 23113377 (Version 2)
Quarter: 2023Q4

REPORT INFORMATION
  Report Type: Spontaneous
  Country: US (occurrence: US)
  Receive Date: 20231027
  Receipt Date: 20231117
  Transmission Date: 20240110
  Serious: Yes (Other)
  Sender: FDA-Public Use
  Company Number: US-ORGANON-O2310USA003087

PATIENT
  Age: 40 Year
  Sex: Female
  Weight: 152.83 kg

DRUGS (8)
  1. NEXPLANON [Suspect]
     Active Substance: ETONOGESTREL
     Indication: Contraception
     Dosage: 1 IMPLANT IN UPPER LEFT ARM, EVERY 3 YEARS
     Route: 058
     Dates: start: 20231020, end: 20231020
  2. BOTOX [Concomitant]
     Active Substance: ONABOTULINUMTOXINA
     Dosage: EVERY 3 MONTHS
  3. BUSPAR [Concomitant]
     Active Substance: BUSPIRONE HYDROCHLORIDE
     Dosage: DAILY
  4. OMEPRAZOLE [Concomitant]
     Active Substance: OMEPRAZOLE
     Dosage: 1 TABLET DELAYED RELEASE
     Route: 048
  5. QULIPTA [Concomitant]
     Active Substance: ATOGEPANT
  6. XANAX [Concomitant]
     Active Substance: ALPRAZOLAM
     Dosage: UNK, BID
     Route: 048
  7. ZOLOFT [Concomitant]
     Active Substance: SERTRALINE HYDROCHLORIDE
     Dosage: 2 TABLET
     Route: 048
  8. ZONEGRAN [Concomitant]
     Active Substance: ZONISAMIDE
     Dosage: 4 DAILY

REACTIONS (2)
  - Device expulsion [Recovered/Resolved]
  - No adverse event [Unknown]

NARRATIVE: CASE EVENT DATE: 20231020
